FAERS Safety Report 25542749 (Version 1)
Quarter: 2025Q3

REPORT INFORMATION
  Report Type: Spontaneous
  Country: CA (occurrence: CA)
  Receive Date: 20250711
  Receipt Date: 20250711
  Transmission Date: 20251021
  Serious: Yes (Other)
  Sender: AMERICAN REGENT
  Company Number: CA-AMERICAN REGENT INC-2025002379

PATIENT
  Age: 18 Year
  Sex: Female

DRUGS (1)
  1. VENOFER [Suspect]
     Active Substance: IRON SUCROSE
     Indication: Serum ferritin abnormal
     Dates: start: 20250123, end: 20250123

REACTIONS (6)
  - Mobility decreased [Recovering/Resolving]
  - Hypoaesthesia [Recovering/Resolving]
  - Syncope [Recovering/Resolving]
  - Muscle tightness [Recovering/Resolving]
  - Arthralgia [Not Recovered/Not Resolved]
  - Back pain [Recovering/Resolving]

NARRATIVE: CASE EVENT DATE: 20250123
